FAERS Safety Report 15680938 (Version 1)
Quarter: 2018Q4

REPORT INFORMATION
  Report Type: Report from Study
  Country: CA (occurrence: CA)
  Receive Date: 20181203
  Receipt Date: 20181203
  Transmission Date: 20190205
  Serious: Yes (Other)
  Sender: FDA-Public Use
  Company Number: CA-JNJFOC-20181134193

PATIENT
  Age: 23 Year
  Sex: Male
  Weight: 98.7 kg

DRUGS (1)
  1. REMICADE [Suspect]
     Active Substance: INFLIXIMAB
     Indication: CROHN^S DISEASE
     Route: 042
     Dates: start: 20150731

REACTIONS (2)
  - Subcutaneous abscess [Recovering/Resolving]
  - Infected cyst [Unknown]

NARRATIVE: CASE EVENT DATE: 201811
